FAERS Safety Report 7426962-6 (Version None)
Quarter: 2011Q2

REPORT INFORMATION
  Report Type: 
  Country: None (occurrence: None)
  Receive Date: 20110420
  Receipt Date: 20110222
  Transmission Date: 20111010
  Serious: Yes (Hospitalization, Other)
  Sender: FDA-Public Use
  Company Number: US-BAYER-201032172NA

PATIENT
  Age: 25 Year
  Sex: Female
  Weight: 88 kg

DRUGS (3)
  1. YAZ [Suspect]
     Indication: PRODUCT USED FOR UNKNOWN INDICATION
     Route: 065
  2. OCELLA [Suspect]
     Indication: PRODUCT USED FOR UNKNOWN INDICATION
     Route: 065
  3. YASMIN [Suspect]
     Indication: PRODUCT USED FOR UNKNOWN INDICATION
     Dosage: UNK UNK, UNK
     Route: 065
     Dates: start: 20060901, end: 20070201

REACTIONS (4)
  - PULMONARY EMBOLISM [None]
  - COAGULOPATHY [None]
  - GALLBLADDER DISORDER [None]
  - CHOLELITHIASIS [None]
